FAERS Safety Report 23481192 (Version 1)
Quarter: 2024Q1

REPORT INFORMATION
  Report Type: Spontaneous
  Country: US (occurrence: US)
  Receive Date: 20240205
  Receipt Date: 20240205
  Transmission Date: 20240410
  Serious: Yes (Other)
  Sender: FDA-Public Use
  Company Number: US-BRISTOL-MYERS SQUIBB COMPANY-2024-017858

PATIENT
  Age: 85 Year
  Sex: Female

DRUGS (1)
  1. REVLIMID [Suspect]
     Active Substance: LENALIDOMIDE
     Indication: T-cell lymphoma
     Dosage: 1 TABLET FOR 21 DAYS THEN HOLD FOR 7 DAYS.

REACTIONS (3)
  - Rash [Unknown]
  - Neuropathy peripheral [Unknown]
  - Off label use [Unknown]
